FAERS Safety Report 12265335 (Version 1)
Quarter: 2016Q2

REPORT INFORMATION
  Report Type: Spontaneous
  Country: US (occurrence: US)
  Receive Date: 20160413
  Receipt Date: 20160413
  Transmission Date: 20160815
  Serious: Yes (Other)
  Sender: FDA-Public Use
  Company Number: US-009507513-1604USA006758

PATIENT
  Age: 52 Year
  Sex: Male

DRUGS (8)
  1. HYDROCHLOROTHIAZIDE. [Suspect]
     Active Substance: HYDROCHLOROTHIAZIDE
     Route: 048
  2. HUMALOG [Suspect]
     Active Substance: INSULIN LISPRO
  3. TOUJEO [Suspect]
     Active Substance: INSULIN GLARGINE
  4. COZAAR [Suspect]
     Active Substance: LOSARTAN POTASSIUM
     Route: 048
  5. JANUVIA [Suspect]
     Active Substance: SITAGLIPTIN PHOSPHATE
     Route: 048
  6. METFORMIN [Suspect]
     Active Substance: METFORMIN HYDROCHLORIDE
  7. ATORVASTATIN [Suspect]
     Active Substance: ATORVASTATIN
  8. CINNAMON. [Suspect]
     Active Substance: CINNAMON

REACTIONS (4)
  - General physical health deterioration [Unknown]
  - Blood glucose decreased [Unknown]
  - Blood glucose increased [Unknown]
  - Surgery [Unknown]

NARRATIVE: CASE EVENT DATE: 20160203
